FAERS Safety Report 8448915-1 (Version None)
Quarter: 2012Q2

REPORT INFORMATION
  Report Type: 
  Country: None (occurrence: None)
  Receive Date: 20120619
  Receipt Date: 20110923
  Transmission Date: 20120825
  Serious: Yes (Other)
  Sender: FDA-Public Use
  Company Number: FR-GLAXOSMITHKLINE-B0752153A

PATIENT
  Sex: Male
  Weight: 58 kg

DRUGS (3)
  1. NICARDIPINE HCL [Concomitant]
     Dosage: 60MG PER DAY
     Dates: start: 20110810
  2. BISOPROLOL FUMARATE [Concomitant]
     Dosage: 10MG PER DAY
     Dates: start: 20110810
  3. PAZOPANIB [Suspect]
     Indication: NEOPLASM MALIGNANT
     Route: 048
     Dates: start: 20110824

REACTIONS (1)
  - BLOOD THYROID STIMULATING HORMONE INCREASED [None]
